FAERS Safety Report 8960467 (Version 2)
Quarter: 2013Q1

REPORT INFORMATION
  Report Type: Spontaneous
  Country: JP (occurrence: None)
  Receive Date: 20121203
  Receipt Date: 20121205
  Transmission Date: 20140127
  Serious: Yes (Life-Threatening)
  Sender: FDA-Public Use
  Company Number: VAL_01017_2012

PATIENT
  Age: 84 Year
  Sex: Male
  Weight: 55 kg

DRUGS (20)
  1. ROCALTROL [Suspect]
     Indication: METASTASES TO BONE
     Route: 048
     Dates: start: 20120802
  2. TARCEVA [Suspect]
     Indication: LUNG ADENOCARCINOMA
     Route: 048
     Dates: start: 20120727, end: 20120810
  3. AMOXAN [Suspect]
     Indication: CANCER PAIN
     Route: 048
     Dates: start: 20120808, end: 20120809
  4. DENOSUMAB [Suspect]
     Indication: METASTASES TO BONE
     Route: 058
     Dates: start: 20120802
  5. CALCIUM LACTATE [Suspect]
     Indication: METASTASES TO BONE
     Route: 048
     Dates: start: 20120802
  6. CALONAL [Suspect]
     Indication: CANCER PAIN
     Route: 048
     Dates: start: 20120728
  7. SELBEX [Suspect]
     Indication: GASTRITIS
     Route: 048
     Dates: start: 20120727
  8. OXYCONTIN [Concomitant]
  9. OXINORM [Concomitant]
  10. NOVAMIN-AMIKACIN SULFATE [Concomitant]
  11. MAGLAX [Concomitant]
  12. ITOROL [Concomitant]
  13. PLAVIX [Concomitant]
  14. OMEPRAL [Concomitant]
  15. MUCOSOLVAN [Concomitant]
  16. BLOPRESS [Concomitant]
  17. RENIVACE [Concomitant]
  18. BAYASPIRIN [Concomitant]
  19. ATELEC [Concomitant]
  20. LIPOVAS [Concomitant]

REACTIONS (2)
  - Rhabdomyolysis [None]
  - Renal impairment [None]
